FAERS Safety Report 16480398 (Version 1)
Quarter: 2019Q2

REPORT INFORMATION
  Report Type: Report from Study
  Country: US (occurrence: US)
  Receive Date: 20190626
  Receipt Date: 20190626
  Transmission Date: 20190711
  Serious: Yes (Hospitalization)
  Sender: FDA-Public Use
  Company Number: US-ACTELION-A-NJ2019-191957

PATIENT
  Age: 68 Year
  Sex: Female

DRUGS (2)
  1. UPTRAVI [Suspect]
     Active Substance: SELEXIPAG
     Indication: PULMONARY ARTERIAL HYPERTENSION
     Dosage: 400 MCG, BID
     Route: 048
     Dates: start: 20190523
  2. OPSUMIT [Suspect]
     Active Substance: MACITENTAN
     Indication: PULMONARY ARTERIAL HYPERTENSION
     Dosage: 10 MG, QD
     Route: 048
     Dates: start: 20190531

REACTIONS (11)
  - Telangiectasia [Unknown]
  - Headache [Unknown]
  - Sclerodactylia [Unknown]
  - Raynaud^s phenomenon [Unknown]
  - Oesophageal motility disorder [Unknown]
  - Limb amputation [Unknown]
  - Calcinosis [Unknown]
  - Gastrooesophageal reflux disease [Not Recovered/Not Resolved]
  - Condition aggravated [Not Recovered/Not Resolved]
  - Nausea [Unknown]
  - Phantom limb syndrome [Unknown]

NARRATIVE: CASE EVENT DATE: 20190523
